FAERS Safety Report 8215483-9 (Version None)
Quarter: 2012Q1

REPORT INFORMATION
  Report Type: 
  Country: None (occurrence: None)
  Receive Date: 20120316
  Receipt Date: 20120307
  Transmission Date: 20120608
  Serious: Yes (Life-Threatening, Hospitalization)
  Sender: FDA-Public Use
  Company Number: SE-VERTEX PHARMACEUTICALS INC.-000000000000000327

PATIENT
  Sex: Male

DRUGS (7)
  1. COPEGUS [Concomitant]
     Indication: HEPATITIS C
     Dosage: DOSAGE FORM: FILM COATED TABLET
     Route: 048
     Dates: start: 20111018, end: 20111226
  2. INCIVO (TELAPREVIR) [Suspect]
     Indication: HEPATITIS C
     Dosage: DOSAGE FORM: TABLET
     Route: 065
     Dates: start: 20111018, end: 20111226
  3. COPEGUS [Concomitant]
     Dosage: DOSAGE FORM: FILM COATED TABLET
     Route: 048
     Dates: start: 20111226
  4. DESLORATADINE [Concomitant]
  5. ESOMEPRAZOLE MAGNESIUM [Concomitant]
  6. ESCITALOPRAM [Concomitant]
  7. PEGASYS [Concomitant]
     Indication: HEPATITIS C
     Dosage: DOSAGE FORM: SOLUTION FOR INJECTION
     Route: 058
     Dates: start: 20111021, end: 20111226

REACTIONS (4)
  - DIARRHOEA [None]
  - MULTI-ORGAN FAILURE [None]
  - STAPHYLOCOCCAL SEPSIS [None]
  - NAUSEA [None]
